FAERS Safety Report 17084850 (Version 4)
Quarter: 2020Q2

REPORT INFORMATION
  Report Type: Spontaneous
  Country: DE (occurrence: DE)
  Receive Date: 20191127
  Receipt Date: 20200625
  Transmission Date: 20200713
  Serious: Yes (Death, Hospitalization, Other)
  Sender: FDA-Public Use
  Company Number: DE-GILEAD-2019-0435824

PATIENT
  Age: 72 Year
  Sex: Female
  Weight: 68 kg

DRUGS (15)
  1. YESCARTA [Suspect]
     Active Substance: AXICABTAGENE CILOLEUCEL
     Indication: DIFFUSE LARGE B-CELL LYMPHOMA
     Dosage: UNK
     Route: 042
     Dates: start: 20191111, end: 20191111
  2. METOPROLOL SUCCINATE. [Concomitant]
     Active Substance: METOPROLOL SUCCINATE
     Indication: HYPERTENSION
  3. COTRIM FORTE [Concomitant]
     Active Substance: SULFAMETHOXAZOLE\TRIMETHOPRIM
     Dosage: 960 MG, UNK
     Route: 048
  4. MEROPENEM. [Concomitant]
     Active Substance: MEROPENEM
  5. AVALOX [Concomitant]
     Active Substance: MOXIFLOXACIN HYDROCHLORIDE
  6. CASPOFUNGIN [Concomitant]
     Active Substance: CASPOFUNGIN
  7. RAMIPRIL. [Concomitant]
     Active Substance: RAMIPRIL
     Indication: HYPERTENSION
     Dosage: 5 MG, UNK
     Route: 048
  8. PANTOZOLE [Concomitant]
     Active Substance: PANTOPRAZOLE SODIUM
     Indication: PROPHYLAXIS
     Dosage: 40 MG, UNK
     Route: 048
  9. ACICLOVIR [Concomitant]
     Active Substance: ACYCLOVIR
     Indication: PROPHYLAXIS
     Dosage: 400 MG, UNK
     Route: 048
  10. LINEZOLID. [Concomitant]
     Active Substance: LINEZOLID
  11. OXYGEN. [Concomitant]
     Active Substance: OXYGEN
  12. PRAVASTATIN. [Concomitant]
     Active Substance: PRAVASTATIN
     Dosage: 10 MG, UNK
     Route: 048
  13. ASA [Concomitant]
     Active Substance: ASPIRIN
     Indication: HYPERTENSION
     Dosage: 100 MG, UNK
     Route: 048
  14. VANCOMYCIN [Concomitant]
     Active Substance: VANCOMYCIN
  15. FORTUM [CEFTAZIDIME] [Concomitant]
     Active Substance: CEFTAZIDIME

REACTIONS (8)
  - Acute kidney injury [Unknown]
  - Sepsis [Not Recovered/Not Resolved]
  - Candida infection [Not Recovered/Not Resolved]
  - Bronchopulmonary aspergillosis [Fatal]
  - Multiple organ dysfunction syndrome [Not Recovered/Not Resolved]
  - Cytokine release syndrome [Fatal]
  - Bacterial sepsis [Not Recovered/Not Resolved]
  - Aspergillus infection [Not Recovered/Not Resolved]

NARRATIVE: CASE EVENT DATE: 201911
